FAERS Safety Report 6445788-3 (Version None)
Quarter: 2009Q4

REPORT INFORMATION
  Report Type: 
  Country: None (occurrence: None)
  Receive Date: 20091119
  Receipt Date: 20091109
  Transmission Date: 20100525
  Serious: Yes (Other)
  Sender: FDA-Public Use
  Company Number: US-BIOGENIDEC-2009BI032579

PATIENT
  Age: 73 Year
  Sex: Female

DRUGS (9)
  1. TYSABRI [Suspect]
     Indication: MULTIPLE SCLEROSIS
     Route: 042
     Dates: start: 20090710
  2. HUMAN INSULIN [Concomitant]
  3. SIMVASTATIN [Concomitant]
  4. DIAZEPAM [Concomitant]
  5. RABEPRAZOLE [Concomitant]
  6. IMIPRAMINE [Concomitant]
  7. HYDROCHLOROTHIAZIDE [Concomitant]
  8. LISINOPRIL [Concomitant]
  9. TIZANIDINE HCL [Concomitant]

REACTIONS (3)
  - BASAL CELL CARCINOMA [None]
  - HEMICEPHALALGIA [None]
  - SQUAMOUS CELL CARCINOMA OF SKIN [None]
